FAERS Safety Report 9628327 (Version 1)
Quarter: 2013Q4

REPORT INFORMATION
  Report Type: Spontaneous
  Country: AU (occurrence: AU)
  Receive Date: 20131017
  Receipt Date: 20131017
  Transmission Date: 20140711
  Serious: Yes (Death, Other)
  Sender: FDA-Public Use
  Company Number: PHHY2013AU115988

PATIENT
  Sex: Female

DRUGS (3)
  1. ONBREZ [Suspect]
  2. SPIRIVA [Suspect]
  3. WARFARIN [Suspect]

REACTIONS (2)
  - Death [Fatal]
  - Cerebrovascular accident [Unknown]
